FAERS Safety Report 19426036 (Version 1)
Quarter: 2021Q2

REPORT INFORMATION
  Report Type: Spontaneous
  Country: US (occurrence: US)
  Receive Date: 20210616
  Receipt Date: 20210616
  Transmission Date: 20210717
  Serious: No
  Sender: FDA-Public Use
  Company Number: US-009507513-2106USA001371

PATIENT
  Sex: Female

DRUGS (1)
  1. KEYTRUDA [Suspect]
     Active Substance: PEMBROLIZUMAB
     Indication: CUTANEOUS T-CELL LYMPHOMA

REACTIONS (3)
  - Product use in unapproved indication [Unknown]
  - No adverse event [Unknown]
  - Circumstance or information capable of leading to medication error [Unknown]
